FAERS Safety Report 23059503 (Version 1)
Quarter: 2023Q4

REPORT INFORMATION
  Report Type: Spontaneous
  Country: TH (occurrence: TH)
  Receive Date: 20231012
  Receipt Date: 20231012
  Transmission Date: 20240110
  Serious: Yes (Other)
  Sender: FDA-Public Use
  Company Number: TH-BAYER-2023A142816

PATIENT

DRUGS (1)
  1. ULTRAVIST [Suspect]
     Active Substance: IOPROMIDE
     Indication: Computerised tomogram
     Dosage: 100 ML, ONCE

REACTIONS (6)
  - Oxygen saturation decreased [None]
  - Dyspnoea [None]
  - Tongue oedema [None]
  - Ocular hyperaemia [None]
  - Nasal congestion [None]
  - Erythema [None]
